FAERS Safety Report 4509867-X (Version None)
Quarter: 2004Q4

REPORT INFORMATION
  Report Type: 
  Country: None (occurrence: None)
  Receive Date: 20041119
  Receipt Date: 20041027
  Transmission Date: 20050328
  Serious: Yes (Other)
  Sender: FDA-Public Use
  Company Number: USA040773643

PATIENT
  Age: 70 Year
  Sex: Female
  Weight: 61 kg

DRUGS (10)
  1. FORTEO [Suspect]
     Indication: OSTEOPOROSIS
     Dosage: 20 UG/1 DAY
     Dates: start: 20040602, end: 20040607
  2. LEXAPRO [Concomitant]
  3. LORAZEPAM [Concomitant]
  4. PREDNISONE [Concomitant]
  5. NIFEDIPINE - SLOW RELEASE (NIFEDIPINE PA) [Concomitant]
  6. PRILOSEC (OMEPRAZOLE RATIOPHARM) [Concomitant]
  7. WARFARIN SODIUM [Concomitant]
  8. NEURONTIN (GABAPENTIN PFIZER) [Concomitant]
  9. MOBIC [Concomitant]
  10. PLAQUENIL [Concomitant]

REACTIONS (1)
  - CHEST WALL PAIN [None]
